FAERS Safety Report 16650625 (Version 1)
Quarter: 2019Q3

REPORT INFORMATION
  Report Type: Spontaneous
  Country: RO (occurrence: RO)
  Receive Date: 20190731
  Receipt Date: 20190731
  Transmission Date: 20191004
  Serious: Yes (Death, Hospitalization, Other)
  Sender: FDA-Public Use
  Company Number: PHHY2019RO176357

PATIENT
  Age: 72 Year
  Sex: Male

DRUGS (4)
  1. ZOLEDRONIC ACID [Suspect]
     Active Substance: ZOLEDRONIC ACID
     Indication: PRODUCT USED FOR UNKNOWN INDICATION
     Dosage: UNK
     Route: 065
     Dates: start: 20160901, end: 20181102
  2. SUTENT [Suspect]
     Active Substance: SUNITINIB MALATE
     Dosage: 50 MG, CYCLIC (28 DAYS ON TREATMENT WITH 14 DAYS PAUSE)
     Route: 048
     Dates: start: 20160901, end: 20190408
  3. SUTENT [Suspect]
     Active Substance: SUNITINIB MALATE
     Dosage: 50 MG, CYCLIC (28 DAYS ON TREATMENT WITH 14 DAYS PAUSE)
     Route: 048
     Dates: start: 201904
  4. SUTENT [Suspect]
     Active Substance: SUNITINIB MALATE
     Indication: CLEAR CELL RENAL CELL CARCINOMA
     Dosage: 37.5 MG, UNK
     Route: 065

REACTIONS (6)
  - Hypothyroidism [Unknown]
  - Jaw fistula [Unknown]
  - Mouth haemorrhage [Fatal]
  - Vascular rupture [Unknown]
  - Osteonecrosis of jaw [Fatal]
  - Cellulitis [Recovered/Resolved]

NARRATIVE: CASE EVENT DATE: 20180418
